FAERS Safety Report 6886998-0 (Version None)
Quarter: 2010Q3

REPORT INFORMATION
  Report Type: 
  Country: None (occurrence: None)
  Receive Date: 20100730
  Receipt Date: 20100721
  Transmission Date: 20110219
  Serious: Yes (Other)
  Sender: FDA-Public Use
  Company Number: US-JNJFOC-20100708112

PATIENT
  Sex: Female
  Weight: 74.84 kg

DRUGS (12)
  1. DURAGESIC-100 [Suspect]
     Indication: ARTHRITIS
     Route: 062
  2. DURAGESIC-100 [Suspect]
     Route: 062
  3. DURAGESIC-100 [Suspect]
     Route: 062
  4. DURAGESIC-100 [Suspect]
     Route: 062
  5. DURAGESIC-100 [Suspect]
     Indication: FIBROMYALGIA
     Route: 062
  6. DURAGESIC-100 [Suspect]
     Route: 062
  7. DURAGESIC-100 [Suspect]
     Route: 062
  8. DURAGESIC-100 [Suspect]
     Route: 062
  9. DURAGESIC-100 [Suspect]
     Dosage: 100UG/HR+25UG/HR
     Route: 062
  10. DURAGESIC-100 [Suspect]
     Dosage: 100UG/HR+25UG/HR
     Route: 062
  11. XYZAL [Concomitant]
     Indication: MULTIPLE ALLERGIES
     Route: 048
  12. INTRAVENOUS SOLUTION [Concomitant]
     Indication: PAIN
     Route: 042

REACTIONS (8)
  - CONSTIPATION [None]
  - HYPOTHYROIDISM [None]
  - LETHARGY [None]
  - MENOPAUSE [None]
  - MIGRAINE [None]
  - PAIN [None]
  - SLEEP APNOEA SYNDROME [None]
  - VENOUS INSUFFICIENCY [None]
